FAERS Safety Report 7754407-5 (Version None)
Quarter: 2011Q3

REPORT INFORMATION
  Report Type: 
  Country: None (occurrence: None)
  Receive Date: 20110915
  Receipt Date: 20110905
  Transmission Date: 20111222
  Serious: Yes (Other)
  Sender: FDA-Public Use
  Company Number: AR-GENENTECH-321535

PATIENT
  Sex: Female

DRUGS (4)
  1. LUCENTIS [Suspect]
     Dosage: 0.5 DF, UNK
     Dates: start: 20110707
  2. LUCENTIS [Suspect]
     Dosage: 05 DF, UNK
     Dates: start: 20110707
  3. LUCENTIS [Suspect]
     Indication: MACULOPATHY
     Dosage: 1 DF, Q3M
     Route: 031
     Dates: start: 20100503
  4. LUCENTIS [Suspect]
     Dosage: 1 DF, Q3M
     Route: 031
     Dates: start: 20110531

REACTIONS (6)
  - MACULAR DEGENERATION [None]
  - VISION BLURRED [None]
  - VISUAL IMPAIRMENT [None]
  - INAPPROPRIATE SCHEDULE OF DRUG ADMINISTRATION [None]
  - RETINAL HAEMORRHAGE [None]
  - VISUAL ACUITY REDUCED [None]
